FAERS Safety Report 21435097 (Version 1)
Quarter: 2022Q4

REPORT INFORMATION
  Report Type: Spontaneous
  Country: DE (occurrence: DE)
  Receive Date: 20221010
  Receipt Date: 20221010
  Transmission Date: 20230113
  Serious: Yes (Hospitalization)
  Sender: FDA-Public Use
  Company Number: DE-ADRED-08504-01

PATIENT
  Age: 80 Year
  Sex: Female

DRUGS (19)
  1. PREGABALIN [Suspect]
     Active Substance: PREGABALIN
     Indication: Product used for unknown indication
     Dosage: 50MILLIGRAM ,50 MG, 1-1-0-0  ,
     Route: 048
  2. PREGABALIN [Interacting]
     Active Substance: PREGABALIN
     Indication: Product used for unknown indication
     Dosage: 25 MILLIGRAM,25 MG, 0-0-0-1
     Route: 048
  3. SERTRALINE [Interacting]
     Active Substance: SERTRALINE HYDROCHLORIDE
     Indication: Product used for unknown indication
     Dosage: 50 MILLIGRAM, 50 MG, 1-0-0-0
     Route: 048
  4. RISPERIDONE [Suspect]
     Active Substance: RISPERIDONE
     Indication: Product used for unknown indication
     Dosage: 2 MILLIGRAM, 2 MG, 0-0.5-0.5-0
     Route: 048
  5. MELPERONE [Suspect]
     Active Substance: MELPERONE
     Indication: Product used for unknown indication
     Dosage: 25 MILLIGRAM, 25 MG, 0-0-1-0.5
     Route: 048
  6. PERAZINE DIMALONATE [Suspect]
     Active Substance: PERAZINE DIMALONATE
     Indication: Product used for unknown indication
     Dosage: 25 MILLIGRAM, 25 MG, 1-1-0-0
     Route: 048
  7. ACETYLCYSTEINE [Concomitant]
     Active Substance: ACETYLCYSTEINE
     Dosage: 60 MILLIGRAM, 600 MG, 1-0-0-0
     Route: 048
  8. SODIUM CHLORIDE [Concomitant]
     Active Substance: SODIUM CHLORIDE
     Dosage: 500 MILLILITER, 500 ML, IF REQUIRED
     Route: 058
  9. DULCOLAX NOS [Concomitant]
     Active Substance: BISACODYL OR DOCUSATE SODIUM
     Dosage: UNK, , IF REQUIRED
     Route: 054
  10. INSULIN ASPART [Concomitant]
     Active Substance: INSULIN ASPART
     Dosage: BY SCHEMA
     Route: 058
  11. AMOXICLAVULAN 1A PHARMA [Concomitant]
     Dosage: 500|125 MG, 1-1-1-0
     Route: 048
  12. METAMIZOL [Concomitant]
     Active Substance: METAMIZOLE SODIUM
     Dosage: 500 MILLIGRAM, 500 MG, 1-0-1-0
     Route: 048
  13. CARVEDILOL [Concomitant]
     Active Substance: CARVEDILOL
     Dosage: 12.5 MILLIGRAM, 12.5 MG, 1-0-0-0
     Route: 048
  14. ASPIRIN [Concomitant]
     Active Substance: ASPIRIN
     Dosage: 100 MILLIGRAM, 100 MG, 0-1-0-0
     Route: 048
  15. PIPAMPERONE [Concomitant]
     Active Substance: PIPAMPERONE
     Dosage: 40 MILLIGRAM, 40 MG , IF REQUIRED
     Route: 048
  16. LANTUS [Concomitant]
     Active Substance: INSULIN GLARGINE
     Dosage: 0-0-0-8
     Route: 058
  17. SITAGLIPTIN [Concomitant]
     Active Substance: SITAGLIPTIN
     Dosage: 50 MILLIGRAM, 50 MG, 1-0-0-0
     Route: 048
  18. RAMIPRIL [Concomitant]
     Active Substance: RAMIPRIL
     Dosage: 5 MILLIGRAM, 5 MG, 0-0-0.5-0
     Route: 048
  19. LACTULOSE [Concomitant]
     Active Substance: LACTULOSE
     Dosage: 5-0-5-0
     Route: 048

REACTIONS (17)
  - Urosepsis [Unknown]
  - Atrial fibrillation [Unknown]
  - Pneumonia [Unknown]
  - Dehydration [Unknown]
  - General physical health deterioration [Unknown]
  - Infection [Unknown]
  - Hypernatraemia [Unknown]
  - Hypovolaemia [Unknown]
  - Thrombocytopenia [Unknown]
  - Hypotension [Unknown]
  - Acute kidney injury [Unknown]
  - Tachycardia [Unknown]
  - Cough [Unknown]
  - Pyrexia [Unknown]
  - Disturbance in attention [Unknown]
  - Blood creatine phosphokinase increased [Unknown]
  - Labelled drug-drug interaction medication error [Unknown]
